FAERS Safety Report 26124363 (Version 1)
Quarter: 2025Q4

REPORT INFORMATION
  Report Type: Spontaneous
  Country: US (occurrence: US)
  Receive Date: 20251205
  Receipt Date: 20251205
  Transmission Date: 20260118
  Serious: Yes (Hospitalization, Other)
  Sender: PROCTER AND GAMBLE
  Company Number: US-PROCTER+GAMBLE-PH25020813

PATIENT
  Age: 16 Year
  Sex: Female

DRUGS (1)
  1. ACETAMINOPHEN [Suspect]
     Active Substance: ACETAMINOPHEN
     Dosage: 18.5 GRAM, 1 ONLY

REACTIONS (4)
  - Toxicity to various agents [Unknown]
  - Intentional overdose [Unknown]
  - Intentional product use issue [Unknown]
  - Vomiting [Unknown]
